FAERS Safety Report 5362288-2 (Version None)
Quarter: 2007Q2

REPORT INFORMATION
  Report Type: 
  Country: None (occurrence: None)
  Receive Date: 20070619
  Receipt Date: 20070614
  Transmission Date: 20071010
  Serious: Yes (Other)
  Sender: FDA-Public Use
  Company Number: A0656618A

PATIENT
  Sex: Male

DRUGS (3)
  1. COREG [Suspect]
     Indication: LEFT VENTRICULAR DYSFUNCTION
     Route: 048
     Dates: start: 20070101, end: 20070101
  2. ACE INHIBITORS [Concomitant]
  3. POLYPHARMACY [Concomitant]

REACTIONS (1)
  - CARDIAC FAILURE CONGESTIVE [None]
